FAERS Safety Report 23179176 (Version 2)
Quarter: 2023Q4

REPORT INFORMATION
  Report Type: Spontaneous
  Country: EG (occurrence: EG)
  Receive Date: 20231113
  Receipt Date: 20231120
  Transmission Date: 20240109
  Serious: Yes (Hospitalization, Other)
  Sender: FDA-Public Use
  Company Number: EG-NOVOPROD-1135863

PATIENT
  Age: 16 Year
  Sex: Female
  Weight: 60 kg

DRUGS (4)
  1. ACTRAPID [Suspect]
     Active Substance: INSULIN HUMAN
     Dosage: 30 IU, QD(DOSE INCREASED 10 U/BEFORE BREAKFAST, 15U/BEFORE LUNCH AND 5 U/ BEFORE DINNER )
     Route: 058
  2. ACTRAPID [Suspect]
     Active Substance: INSULIN HUMAN
     Indication: Type 1 diabetes mellitus
     Dosage: 25 IU, QD
     Route: 058
     Dates: start: 20230904
  3. BENFOTIAMINE\CYANOCOBALAMIN\PYRIDOXINE HYDROCHLORIDE [Concomitant]
     Active Substance: BENFOTIAMINE\CYANOCOBALAMIN\PYRIDOXINE HYDROCHLORIDE
     Indication: Vitamin supplementation
     Dosage: QW
     Route: 030
     Dates: start: 20230910
  4. BENFOTIAMINE\CYANOCOBALAMIN\PYRIDOXINE HYDROCHLORIDE [Concomitant]
     Active Substance: BENFOTIAMINE\CYANOCOBALAMIN\PYRIDOXINE HYDROCHLORIDE
     Dosage: 1 TAB/DAY AND 1 TAB/NIGHT
     Route: 048
     Dates: start: 20230910

REACTIONS (1)
  - Coma [Not Recovered/Not Resolved]

NARRATIVE: CASE EVENT DATE: 20230904
